FAERS Safety Report 14614916 (Version 2)
Quarter: 2018Q1

REPORT INFORMATION
  Report Type: Report from Study
  Country: US (occurrence: US)
  Receive Date: 20180308
  Receipt Date: 20180330
  Transmission Date: 20180509
  Serious: No
  Sender: FDA-Public Use
  Company Number: PHEH2018US009269

PATIENT
  Sex: Female

DRUGS (2)
  1. COSENTYX [Suspect]
     Active Substance: SECUKINUMAB
     Indication: PSORIASIS
     Dosage: 300 MG, QMO
     Route: 058
  2. COSENTYX [Suspect]
     Active Substance: SECUKINUMAB
     Indication: DERMATITIS
     Dosage: 300 MG, QMO
     Route: 058
     Dates: start: 20180317

REACTIONS (3)
  - Contusion [Unknown]
  - Product use in unapproved indication [Unknown]
  - Asthenia [Unknown]
